FAERS Safety Report 8239722-3 (Version None)
Quarter: 2012Q1

REPORT INFORMATION
  Report Type: 
  Country: None (occurrence: None)
  Receive Date: 20120328
  Receipt Date: 20120319
  Transmission Date: 20120608
  Serious: Yes (Death, Other)
  Sender: FDA-Public Use
  Company Number: US-JNJFOC-20120312385

PATIENT

DRUGS (6)
  1. TRASTUZUMAB [Suspect]
     Indication: BREAST CANCER
     Dosage: DURING CHEMOTHERAPY
     Route: 065
  2. DOXORUBICIN HCL [Suspect]
     Indication: BREAST CANCER
     Dosage: EVERY 3 WEEKS FOR 4 CYCLES
     Route: 042
  3. CYCLOPHOSPHAMIDE [Suspect]
     Indication: BREAST CANCER
     Dosage: EVERY 3 WEEKS FOR 4 CYCLES
     Route: 065
  4. TRASTUZUMAB [Suspect]
     Dosage: EVERY 3 WEEKS TO COMPLETE 1 YEAR OF TRASTUZUMAB
     Route: 065
  5. TRASTUZUMAB [Suspect]
     Dosage: WITH FIRST DOSE OF DOCITAXEL
     Route: 065
  6. DOCETAXEL [Suspect]
     Indication: BREAST CANCER
     Dosage: EVERY 3 WEEKS FOR FOUR DOSES (AC-T)
     Route: 065

REACTIONS (23)
  - ARTHRALGIA [None]
  - VOMITING [None]
  - EJECTION FRACTION DECREASED [None]
  - BREAST CANCER RECURRENT [None]
  - DIARRHOEA [None]
  - PERIPHERAL MOTOR NEUROPATHY [None]
  - MYALGIA [None]
  - ANAEMIA [None]
  - NAIL DISORDER [None]
  - MENSTRUATION IRREGULAR [None]
  - NAUSEA [None]
  - PERIPHERAL SENSORY NEUROPATHY [None]
  - FATIGUE [None]
  - NEUTROPENIA [None]
  - LEUKOPENIA [None]
  - CARDIAC FAILURE CONGESTIVE [None]
  - PALMAR-PLANTAR ERYTHRODYSAESTHESIA SYNDROME [None]
  - FEBRILE NEUTROPENIA [None]
  - NEUTROPENIC INFECTION [None]
  - ACUTE LEUKAEMIA [None]
  - STOMATITIS [None]
  - BLOOD CREATININE INCREASED [None]
  - THROMBOCYTOPENIA [None]
